FAERS Safety Report 5070301-5 (Version None)
Quarter: 2006Q3

REPORT INFORMATION
  Report Type: 
  Country: None (occurrence: None)
  Receive Date: 20060802
  Receipt Date: 20060720
  Transmission Date: 20061208
  Serious: Yes (Death)
  Sender: FDA-Public Use
  Company Number: HQWYE493120JAN04

PATIENT
  Age: 53 Year
  Sex: Male
  Weight: 71.73 kg

DRUGS (4)
  1. EFFEXOR [Suspect]
  2. CELEXA [Concomitant]
  3. ATIVAN [Concomitant]
  4. XANAX [Concomitant]

REACTIONS (9)
  - ANXIETY [None]
  - CLUMSINESS [None]
  - COMPLETED SUICIDE [None]
  - COORDINATION ABNORMAL [None]
  - DEPRESSION [None]
  - DRUG INEFFECTIVE [None]
  - GUN SHOT WOUND [None]
  - INSOMNIA [None]
  - STRESS [None]
